FAERS Safety Report 9349856 (Version 1)
Quarter: 2013Q2

REPORT INFORMATION
  Report Type: Spontaneous
  Country: US (occurrence: None)
  Receive Date: 20130611
  Receipt Date: 20130611
  Transmission Date: 20140414
  Serious: Yes (Hospitalization)
  Sender: FDA-Public Use
  Company Number: 2013ZX000173

PATIENT
  Age: 41 Year
  Sex: Male
  Weight: 68.04 kg

DRUGS (7)
  1. SUMAVEL DOSEPRO [Suspect]
     Indication: CLUSTER HEADACHE
     Dosage: 1 IN  1 ONCE
     Dates: start: 201303, end: 20130525
  2. INDERAL (PROPRANOLOL HYDROCHLORIDE) [Concomitant]
  3. PERIACTIN (CYPROHEPTADINE HYDROCHLORIDE) [Concomitant]
  4. VERAPAMIL SR (VERAPAMIL HYDROCHLORIDE) [Concomitant]
  5. LEXAPRO (ESCITALO[RAM OXALATE) [Concomitant]
  6. LIMBITROL (LIMBITROL /00164901/) [Concomitant]
  7. PHRENALIN (PHRENALIN) [Concomitant]

REACTIONS (9)
  - Pulse absent [None]
  - Loss of consciousness [None]
  - Communication disorder [None]
  - Hypotension [None]
  - Pain [None]
  - Hunger [None]
  - Dizziness [None]
  - Confusional state [None]
  - Cerebral vasoconstriction [None]
